FAERS Safety Report 20016265 (Version 1)
Quarter: 2021Q4

REPORT INFORMATION
  Report Type: Spontaneous
  Country: US (occurrence: None)
  Receive Date: 20211103
  Receipt Date: 20211103
  Transmission Date: 20220303
  Serious: No
  Sender: FDA-Public Use
  Company Number: None

PATIENT
  Age: 48 Year
  Sex: Female
  Weight: 48.4 kg

DRUGS (4)
  1. PACLITAXEL [Suspect]
     Active Substance: PACLITAXEL
     Indication: Breast cancer female
     Dosage: OTHER FREQUENCY : ONE TIME INFUSION;?
     Route: 056
     Dates: start: 20211102, end: 20211102
  2. Epinephrine 0.3 mg [Concomitant]
     Dates: start: 20211102, end: 20211102
  3. Hydrocortisone 100 mg IVP [Concomitant]
     Dates: start: 20211102, end: 20211102
  4. OXYGEN [Concomitant]
     Active Substance: OXYGEN
     Dates: start: 20211102, end: 20211102

REACTIONS (6)
  - Feeling abnormal [None]
  - Abdominal pain [None]
  - Nausea [None]
  - Erythema [None]
  - Loss of consciousness [None]
  - Therapy cessation [None]

NARRATIVE: CASE EVENT DATE: 20211102
